FAERS Safety Report 10195910 (Version 5)
Quarter: 2014Q3

REPORT INFORMATION
  Report Type: Report from Study
  Country: DE (occurrence: DE)
  Receive Date: 20140527
  Receipt Date: 20140922
  Transmission Date: 20150326
  Serious: Yes (Hospitalization)
  Sender: FDA-Public Use
  Company Number: DE-BAYER-2014-023433

PATIENT
  Age: 52 Year
  Sex: Female
  Weight: 80 kg

DRUGS (1)
  1. BETAFERON [Suspect]
     Active Substance: INTERFERON BETA-1B
     Indication: MULTIPLE SCLEROSIS
     Dosage: 250 ?G, QOD
     Route: 058
     Dates: start: 20120801, end: 20140819

REACTIONS (9)
  - Peripheral coldness [Recovering/Resolving]
  - Injection site irritation [Not Recovered/Not Resolved]
  - Muscle spasticity [None]
  - Injection site rash [None]
  - Injection site reaction [Unknown]
  - Raynaud^s phenomenon [Recovering/Resolving]
  - Skin hypertrophy [Recovering/Resolving]
  - Erythema [Recovering/Resolving]
  - Frostbite [Recovering/Resolving]

NARRATIVE: CASE EVENT DATE: 201212
